FAERS Safety Report 5856644-3 (Version None)
Quarter: 2008Q3

REPORT INFORMATION
  Report Type: 
  Country: None (occurrence: None)
  Receive Date: 20080825
  Receipt Date: 20080822
  Transmission Date: 20090109
  Serious: Yes (Life-Threatening, Hospitalization)
  Sender: FDA-Public Use
  Company Number: DE-BRISTOL-MYERS SQUIBB COMPANY-14278006

PATIENT
  Age: 59 Year
  Sex: Female

DRUGS (7)
  1. ENDOXAN [Suspect]
     Indication: BREAST CANCER
     Dosage: TAKEN ON 20AUG2007
     Dates: start: 20070820, end: 20070928
  2. TAXOL [Suspect]
     Indication: BREAST CANCER
     Dosage: TAKEN ON 06JUL2007
     Dates: start: 20070706, end: 20070706
  3. EPIRUBICIN [Suspect]
     Indication: BREAST CANCER
     Dosage: TAKEN ON 24MAY2007
     Dates: start: 20070524, end: 20070622
  4. NEULASTA [Suspect]
     Indication: LEUKOPENIA
     Dosage: STARTED ON 07JUN07
     Route: 058
     Dates: start: 20070607, end: 20070929
  5. ARIMIDEX [Concomitant]
     Route: 048
     Dates: start: 20070101
  6. LEVOTHYROXINE [Concomitant]
     Route: 048
  7. DARBEPOETIN ALFA [Concomitant]
     Route: 058
     Dates: start: 20070706, end: 20070820

REACTIONS (1)
  - ACUTE MYELOID LEUKAEMIA [None]
